FAERS Safety Report 10188176 (Version 1)
Quarter: 2014Q2

REPORT INFORMATION
  Report Type: Spontaneous
  Country: US (occurrence: US)
  Receive Date: 20140522
  Receipt Date: 20140522
  Transmission Date: 20141212
  Serious: Yes (Disabling)
  Sender: FDA-Public Use
  Company Number: US-ASTRAZENECA-2014SE33401

PATIENT
  Age: 58 Year
  Sex: Female
  Weight: 77.1 kg

DRUGS (10)
  1. NEXIUM [Suspect]
     Indication: GASTROOESOPHAGEAL REFLUX DISEASE
     Route: 048
  2. NEXIUM [Suspect]
     Indication: GASTROOESOPHAGEAL REFLUX DISEASE
     Route: 048
  3. METOPROLOL ER [Suspect]
     Indication: BLOOD PRESSURE ABNORMAL
     Route: 048
  4. OMPERAZOLE [Suspect]
     Route: 048
  5. METFORMIN [Concomitant]
     Indication: DIABETES MELLITUS
  6. GABAPENTIN [Concomitant]
     Indication: FIBROMYALGIA
  7. GABAPENTIN [Concomitant]
     Indication: FIBROMYALGIA
  8. MELOXICAM [Concomitant]
     Indication: ARTHRITIS
     Dosage: PRN
  9. DEXILANT [Concomitant]
  10. PROTONIX [Concomitant]

REACTIONS (9)
  - Musculoskeletal discomfort [Unknown]
  - Fibromyalgia [Unknown]
  - Arthritis [Unknown]
  - Migraine [Unknown]
  - Diabetes mellitus [Unknown]
  - Gastrooesophageal reflux disease [Not Recovered/Not Resolved]
  - Abdominal pain upper [Unknown]
  - Intentional product misuse [Unknown]
  - Drug ineffective [Unknown]
